FAERS Safety Report 19078914 (Version 1)
Quarter: 2021Q1

REPORT INFORMATION
  Report Type: Spontaneous
  Country: US (occurrence: US)
  Receive Date: 20210331
  Receipt Date: 20210331
  Transmission Date: 20210420
  Serious: Yes (Other)
  Sender: FDA-Public Use
  Company Number: US-PURDUE-USA-2021-0238897

PATIENT
  Age: 21 Year
  Sex: Female

DRUGS (15)
  1. METOCLOPRAMIDE. [Concomitant]
     Active Substance: METOCLOPRAMIDE
     Indication: PREMEDICATION
     Dosage: 10 MG, SINGLE
     Route: 042
  2. ACETYLCYSTEINE. [Concomitant]
     Active Substance: ACETYLCYSTEINE
     Indication: BACTERIAL TEST POSITIVE
  3. OXYTOCIN. [Concomitant]
     Active Substance: OXYTOCIN
  4. SODIUM CITRATE. [Concomitant]
     Active Substance: SODIUM CITRATE
     Indication: PREMEDICATION
     Dosage: 30 ML, SINGLE
     Route: 048
  5. PREDNISONE. [Concomitant]
     Active Substance: PREDNISONE
     Dosage: 2.5 MG, DAILY
  6. AZTREONAM. [Concomitant]
     Active Substance: AZTREONAM
     Indication: BACTERIAL TEST POSITIVE
  7. DEXAMETHASONE. [Concomitant]
     Active Substance: DEXAMETHASONE
     Indication: PROPHYLAXIS
  8. NON?PMN MORPHINE SULFATE [Suspect]
     Active Substance: MORPHINE SULFATE
     Indication: ANAESTHESIA
     Dosage: 100 MCG, UNK
     Route: 037
  9. BUPIVACAINE. [Suspect]
     Active Substance: BUPIVACAINE
     Indication: ANAESTHESIA
     Dosage: 9 MG, SINGLE
     Route: 037
  10. CEFEPIME [Concomitant]
     Active Substance: CEFEPIME HYDROCHLORIDE
     Indication: BACTERIAL TEST POSITIVE
  11. DORNASE ALFA. [Concomitant]
     Active Substance: DORNASE ALFA
     Indication: BACTERIAL TEST POSITIVE
  12. CEFAZOLIN [Concomitant]
     Active Substance: CEFAZOLIN
     Indication: INFECTION PROPHYLAXIS
     Dosage: 2 G, UNK
     Route: 042
  13. FENTANYL. [Suspect]
     Active Substance: FENTANYL
     Indication: ANAESTHESIA
     Dosage: 15 MCG, UNK
     Route: 037
  14. ALBUTEROL                          /00139501/ [Concomitant]
     Active Substance: ALBUTEROL
     Indication: BACTERIAL TEST POSITIVE
  15. PHENYLEPHRINE [Concomitant]
     Active Substance: PHENYLEPHRINE HYDROCHLORIDE
     Indication: PROPHYLAXIS
     Dosage: 20 MCG/KG/MIN

REACTIONS (1)
  - Oxygen saturation decreased [Recovered/Resolved]
